FAERS Safety Report 9435279 (Version 1)
Quarter: 2013Q3

REPORT INFORMATION
  Report Type: Spontaneous
  Country: None (occurrence: None)
  Receive Date: 20130730
  Receipt Date: 20130730
  Transmission Date: 20140515
  Serious: Yes (Hospitalization)
  Sender: FDA-Public Use
  Company Number: 149720

PATIENT
  Age: 42 Year
  Sex: Male

DRUGS (1)
  1. BUPRENORPHINE HCL [Suspect]
     Indication: INTENTIONAL DRUG MISUSE
     Route: 045

REACTIONS (4)
  - Hepatitis [None]
  - Renal failure [None]
  - Drug abuse [None]
  - Liver injury [None]
